FAERS Safety Report 15740430 (Version 1)
Quarter: 2018Q4

REPORT INFORMATION
  Report Type: Spontaneous
  Country: US (occurrence: US)
  Receive Date: 20181219
  Receipt Date: 20181219
  Transmission Date: 20190205
  Serious: No
  Sender: FDA-Public Use
  Company Number: US-MERZ NORTH AMERICA, INC.-18MRZ-00648

PATIENT
  Age: 39 Year
  Sex: Female

DRUGS (1)
  1. XEOMIN [Suspect]
     Active Substance: INCOBOTULINUMTOXINA
     Indication: SKIN COSMETIC PROCEDURE
     Dosage: XEOMIN AESTHETIC 100U HIGH DOSE RECONSTITUTED WITH 0.25CC OF NA CL. 20 UNITS PER INJECTION SITE
     Dates: start: 20181204, end: 20181204

REACTIONS (2)
  - Discomfort [Recovered/Resolved]
  - Eyelid ptosis [Unknown]
